FAERS Safety Report 9280318 (Version 1)
Quarter: 2013Q2

REPORT INFORMATION
  Report Type: Spontaneous
  Country: US (occurrence: None)
  Receive Date: 20130507
  Receipt Date: 20130507
  Transmission Date: 20140414
  Serious: Yes (Death)
  Sender: FDA-Public Use
  Company Number: 1212-781

PATIENT
  Sex: Female

DRUGS (1)
  1. EYLEA (AFLIBERCEPT) [Suspect]
     Dates: start: 20120227

REACTIONS (1)
  - Pneumonia aspiration [None]
